FAERS Safety Report 7917667-3 (Version None)
Quarter: 2011Q4

REPORT INFORMATION
  Report Type: 
  Country: None (occurrence: None)
  Receive Date: 20111116
  Receipt Date: 20111014
  Transmission Date: 20120403
  Serious: Yes (Hospitalization)
  Sender: FDA-Public Use
  Company Number: US-UCBSA-042542

PATIENT
  Age: 23 Year
  Sex: Male
  Weight: 47.73 kg

DRUGS (22)
  1. CERTOLIZUMAB PEGOL [Suspect]
     Route: 058
     Dates: start: 20110211, end: 20110225
  2. MULTI-VITAMIN [Concomitant]
     Dosage: DAILY
  3. CERTOLIZUMAB PEGOL [Suspect]
     Route: 058
     Dates: start: 20110121, end: 20110101
  4. CERTOLIZUMAB PEGOL [Suspect]
     Route: 058
     Dates: start: 20100629, end: 20101115
  5. ASCORBIC ACID [Concomitant]
  6. ONDANSETRON [Concomitant]
     Indication: NAUSEA
  7. MERCAPTOPURINE [Concomitant]
     Dosage: DAILY
     Route: 048
     Dates: start: 20100401
  8. LEVAQUIN [Concomitant]
  9. FLUCONAZOLE [Concomitant]
     Dates: start: 20110904, end: 20110918
  10. BENZOCAINE/TETRACAINE [Concomitant]
     Dosage: 1 SPRAY EVERY 4 HOURS
     Route: 061
  11. CERTOLIZUMAB PEGOL [Suspect]
     Indication: CROHN'S DISEASE
     Route: 058
     Dates: start: 20110405
  12. VITAMIN D [Concomitant]
  13. LIDOCAINE [Concomitant]
     Indication: OROPHARYNGEAL PAIN
  14. MALOX [Concomitant]
     Indication: OROPHARYNGEAL PAIN
  15. BUTABEN [Concomitant]
     Dosage: 1 SPRAY EVERY 4 HOURS
     Route: 061
  16. TRAZODONE HCL [Concomitant]
     Dosage: AT NIGHT
  17. CERTOLIZUMAB PEGOL [Suspect]
     Route: 058
     Dates: start: 20100326, end: 20100101
  18. OMEPRAZOLE [Concomitant]
  19. PERCOCET [Concomitant]
     Indication: PAIN
     Dosage: 5/325MG 1-2 TABLETS; Q4H
     Route: 048
  20. MERCAPTOPURINE [Concomitant]
     Dosage: DAILY
  21. BENADRYL SWISH AND SWALLOW [Concomitant]
     Indication: OROPHARYNGEAL PAIN
  22. CLONAZEPAM [Concomitant]
     Route: 048

REACTIONS (1)
  - OROPHARYNGEAL CANDIDIASIS [None]
